FAERS Safety Report 7414389-2 (Version None)
Quarter: 2011Q2

REPORT INFORMATION
  Report Type: 
  Country: None (occurrence: None)
  Receive Date: 20110414
  Receipt Date: 20110405
  Transmission Date: 20111010
  Serious: Yes (Life-Threatening, Hospitalization, Other)
  Sender: FDA-Public Use
  Company Number: AU-AMGEN-US161730

PATIENT
  Age: 49 Year
  Sex: Female

DRUGS (8)
  1. HYDROCHLOROTHIAZIDE [Concomitant]
  2. NEULASTA [Suspect]
     Indication: CHEMOTHERAPY
     Dosage: UNK UNK, UNK
     Dates: start: 20051110
  3. FLUTICASONE/SALMETEROL [Concomitant]
     Dosage: UNK UNK, UNK
     Route: 055
  4. DOXORUBICIN HCL [Concomitant]
  5. RAMIPRIL [Suspect]
  6. CELECOXIB [Concomitant]
  7. DEXAMETHASONE [Concomitant]
  8. CYCLOPHOSPHAMIDE [Concomitant]

REACTIONS (10)
  - PARAESTHESIA [None]
  - PRURITUS [None]
  - ANGIOEDEMA [None]
  - HYPOTENSION [None]
  - ANAPHYLACTIC REACTION [None]
  - RASH [None]
  - CIRCUMORAL OEDEMA [None]
  - URTICARIA [None]
  - DYSPNOEA [None]
  - WHEEZING [None]
